FAERS Safety Report 10969964 (Version 1)
Quarter: 2015Q1

REPORT INFORMATION
  Report Type: Spontaneous
  Country: US (occurrence: None)
  Receive Date: 20150330
  Receipt Date: 20150330
  Transmission Date: 20150721
  Serious: Yes (Hospitalization)
  Sender: FDA-Public Use
  Company Number: None

PATIENT
  Age: 81 Year
  Sex: Female
  Weight: 61.5 kg

DRUGS (17)
  1. WARFARIN [Suspect]
     Active Substance: WARFARIN
     Dosage: DATES OF USE:  RECENT AFTER DVT, 5MG, QD, ORAL
     Route: 048
  2. LOVENOX [Suspect]
     Active Substance: ENOXAPARIN SODIUM
     Indication: POSTOPERATIVE THROMBOSIS
     Dosage: DATES OF USE:  DVT AFTER KNEE REPLACEMENT, 80MG, QD, SUBCUTANEOUS
     Route: 058
  3. CALCIUM CARBONATE-VITAMIN  D2 [Concomitant]
  4. DOCUSATE SODIUM. [Concomitant]
     Active Substance: DOCUSATE SODIUM
  5. OXYCODONE [Concomitant]
     Active Substance: OXYCODONE
  6. DIPHENHYDRAMINE [Concomitant]
     Active Substance: DIPHENHYDRAMINE
  7. FELODIPINE. [Concomitant]
     Active Substance: FELODIPINE
  8. OMEPRAZOLE. [Concomitant]
     Active Substance: OMEPRAZOLE
  9. KETOCONAZOLE. [Concomitant]
     Active Substance: KETOCONAZOLE
  10. LEVOTHYROXINE [Concomitant]
     Active Substance: LEVOTHYROXINE
  11. WARFARIN [Suspect]
     Active Substance: WARFARIN
     Indication: KNEE ARTHROPLASTY
     Dosage: DATES OF USE:  RECENT AFTER DVT, 5MG, QD, ORAL
     Route: 048
  12. BIOTIN [Concomitant]
     Active Substance: BIOTIN
  13. WARFARIN [Suspect]
     Active Substance: WARFARIN
     Indication: POSTOPERATIVE THROMBOSIS
     Dosage: DATES OF USE:  RECENT AFTER DVT, 5MG, QD, ORAL
     Route: 048
  14. OLMESARTAN [Concomitant]
     Active Substance: OLMESARTAN
  15. TRAMADOL [Concomitant]
     Active Substance: TRAMADOL
  16. LOVENOX [Suspect]
     Active Substance: ENOXAPARIN SODIUM
     Indication: KNEE ARTHROPLASTY
     Dosage: DATES OF USE:  DVT AFTER KNEE REPLACEMENT, 80MG, QD, SUBCUTANEOUS
     Route: 058
  17. FOLIC ACID/MULTIV-MIN/LUT [Concomitant]

REACTIONS (2)
  - Abdominal wall haematoma [None]
  - Abdominal pain [None]

NARRATIVE: CASE EVENT DATE: 20150315
